FAERS Safety Report 8608548-0 (Version None)
Quarter: 2012Q3

REPORT INFORMATION
  Report Type: 
  Country: None (occurrence: None)
  Receive Date: 20120821
  Receipt Date: 20120815
  Transmission Date: 20120928
  Serious: Yes (Other)
  Sender: FDA-Public Use
  Company Number: US-PFIZER INC-2012199615

PATIENT

DRUGS (2)
  1. LYRICA [Suspect]
     Dosage: UNK
     Dates: start: 20080101
  2. NEURONTIN [Suspect]
     Dosage: UNK
     Dates: start: 20080101

REACTIONS (6)
  - FEELING ABNORMAL [None]
  - ROAD TRAFFIC ACCIDENT [None]
  - AMNESIA [None]
  - POST-TRAUMATIC STRESS DISORDER [None]
  - NECK INJURY [None]
  - BACK DISORDER [None]
